FAERS Safety Report 11523343 (Version 1)
Quarter: 2015Q3

REPORT INFORMATION
  Report Type: Spontaneous
  Country: US (occurrence: US)
  Receive Date: 20150903
  Receipt Date: 20150903
  Transmission Date: 20151125
  Serious: No
  Sender: FDA-Public Use
  Company Number: US-ELI_LILLY_AND_COMPANY-US201301009297

PATIENT
  Sex: Female

DRUGS (2)
  1. CYMBALTA [Suspect]
     Active Substance: DULOXETINE HYDROCHLORIDE
     Indication: MAJOR DEPRESSION
     Dosage: 60 MG, UNKNOWN
     Dates: start: 201211
  2. CYMBALTA [Suspect]
     Active Substance: DULOXETINE HYDROCHLORIDE
     Dosage: UNK

REACTIONS (6)
  - Urinary retention [Unknown]
  - Paraesthesia [Unknown]
  - Depression [Unknown]
  - Emotional poverty [Unknown]
  - Drug withdrawal syndrome [Unknown]
  - Crying [Unknown]

NARRATIVE: CASE EVENT DATE: 20130125
